FAERS Safety Report 6934714-6 (Version None)
Quarter: 2010Q3

REPORT INFORMATION
  Report Type: 
  Country: None (occurrence: None)
  Receive Date: 20100820
  Receipt Date: 20100817
  Transmission Date: 20110219
  Serious: Yes (Hospitalization)
  Sender: FDA-Public Use
  Company Number: FR-MERCK-1008FRA00056

PATIENT
  Age: 73 Year
  Sex: Male

DRUGS (7)
  1. ZOCOR [Suspect]
     Indication: DYSLIPIDAEMIA
     Route: 048
     Dates: start: 20020101, end: 20100203
  2. CANDESARTAN CILEXETIL AND HYDROCHLOROTHIAZIDE [Suspect]
     Route: 048
     Dates: start: 20090701
  3. ASPIRIN LYSINE [Concomitant]
     Route: 065
     Dates: start: 20020101
  4. METFORMIN [Concomitant]
     Route: 048
     Dates: start: 20030301
  5. GLIPIZIDE [Concomitant]
     Route: 065
     Dates: start: 20060308
  6. CELIPROLOL HYDROCHLORIDE [Suspect]
     Route: 065
     Dates: start: 20070207, end: 20100201
  7. SAW PALMETTO [Concomitant]
     Route: 065
     Dates: start: 20080101

REACTIONS (2)
  - INTERSTITIAL LUNG DISEASE [None]
  - PULMONARY FIBROSIS [None]
